FAERS Safety Report 5781817-8 (Version None)
Quarter: 2008Q2

REPORT INFORMATION
  Report Type: 
  Country: None (occurrence: None)
  Receive Date: 20080623
  Receipt Date: 20070919
  Transmission Date: 20081010
  Serious: No
  Sender: FDA-Public Use
  Company Number: US-ASTRAZENECA-2007UW22091

PATIENT
  Age: 45 Year
  Sex: Female
  Weight: 59 kg

DRUGS (4)
  1. RHINOCORT [Suspect]
     Indication: MULTIPLE ALLERGIES
     Dosage: 2 SPRAYS EACH NOSTRIL
     Route: 045
  2. RHINOCORT [Suspect]
     Indication: SINUSITIS
     Dosage: 2 SPRAYS EACH NOSTRIL
     Route: 045
  3. RHINOCORT [Suspect]
     Indication: HEADACHE
     Dosage: 2 SPRAYS EACH NOSTRIL
     Route: 045
  4. TYLENOL [Concomitant]
     Route: 048

REACTIONS (1)
  - PAIN [None]
